FAERS Safety Report 4433358-8 (Version None)
Quarter: 2004Q3

REPORT INFORMATION
  Report Type: 
  Country: None (occurrence: None)
  Receive Date: 20040824
  Receipt Date: 20040813
  Transmission Date: 20050211
  Serious: Yes (Hospitalization)
  Sender: FDA-Public Use
  Company Number: 6008908F

PATIENT
  Age: 44 Year
  Sex: Male

DRUGS (2)
  1. NIASPAN [Suspect]
     Indication: DYSLIPIDAEMIA
     Dosage: 375 MG QHS PO
     Route: 048
     Dates: start: 20040510
  2. NIASPAN [Suspect]
     Indication: HIGH DENSITY LIPOPROTEIN DECREASED
     Dosage: 375 MG QHS PO
     Route: 048
     Dates: start: 20040510

REACTIONS (2)
  - ABDOMINAL RIGIDITY [None]
  - CHOLECYSTITIS [None]
